FAERS Safety Report 8561539-0 (Version None)
Quarter: 2012Q3

REPORT INFORMATION
  Report Type: 
  Country: None (occurrence: None)
  Receive Date: 20120802
  Receipt Date: 20120713
  Transmission Date: 20120928
  Serious: No
  Sender: FDA-Public Use
  Company Number: US-ASTRAZENECA-2012SE48752

PATIENT
  Age: 85 Year
  Sex: Female
  Weight: 58.1 kg

DRUGS (1)
  1. NEXIUM [Suspect]
     Indication: HYPERCHLORHYDRIA
     Route: 048
     Dates: start: 19970101

REACTIONS (3)
  - REGURGITATION [None]
  - DRUG DOSE OMISSION [None]
  - BODY HEIGHT DECREASED [None]
